FAERS Safety Report 19420013 (Version 1)
Quarter: 2021Q2

REPORT INFORMATION
  Report Type: Spontaneous
  Country: DE (occurrence: DE)
  Receive Date: 20210615
  Receipt Date: 20210615
  Transmission Date: 20210717
  Serious: Yes (Other)
  Sender: FDA-Public Use
  Company Number: DE-ASTRAZENECA-2021A444576

PATIENT
  Age: 1 Day
  Sex: Female
  Weight: 3.4 kg

DRUGS (5)
  1. QUETIAPINE. [Suspect]
     Active Substance: QUETIAPINE
     Indication: BIPOLAR DISORDER
     Route: 064
     Dates: start: 20191021, end: 20200725
  2. DIPHTHERIA AND TETANUS TOXOIDS ADSORBED NOS [Suspect]
     Active Substance: CLOSTRIDIUM TETANI TOXOID ANTIGEN (FORMALDEHYDE INACTIVATED)\CORYNEBACTERIUM DIPHTHERIAE TOXOID ANTIGEN (FORMALDEHYDE INACTIVATED)\DIPHTHERIA AND TETANUS TOXOIDS ADSORBED
     Indication: IMMUNISATION
     Route: 064
  3. HYPNOREX RETARD [Suspect]
     Active Substance: LITHIUM CARBONATE
     Indication: BIPOLAR DISORDER
     Route: 064
     Dates: start: 20191021, end: 20200725
  4. FOLSAURE [Concomitant]
     Active Substance: FOLIC ACID
     Indication: PROPHYLAXIS OF NEURAL TUBE DEFECT
     Route: 064
     Dates: start: 20191021, end: 20200725
  5. CLOMIFENE [Concomitant]
     Active Substance: CLOMIPHENE
     Indication: INFERTILITY FEMALE
     Route: 064

REACTIONS (7)
  - Blood lactate dehydrogenase increased [Recovering/Resolving]
  - Foetal exposure during pregnancy [Unknown]
  - Hepatic enzyme increased [Recovered/Resolved]
  - Respiratory disorder neonatal [Recovered/Resolved]
  - Bradycardia neonatal [Recovered/Resolved]
  - Atrial septal defect [Unknown]
  - Hypoglycaemia neonatal [Recovered/Resolved]

NARRATIVE: CASE EVENT DATE: 20200725
